FAERS Safety Report 8166205-1 (Version None)
Quarter: 2012Q1

REPORT INFORMATION
  Report Type: 
  Country: None (occurrence: None)
  Receive Date: 20120227
  Receipt Date: 20110503
  Transmission Date: 20120608
  Serious: No
  Sender: FDA-Public Use
  Company Number: US-MYLANLABS-2011S1009213

PATIENT
  Age: 16 Year
  Sex: Female
  Weight: 48.54 kg

DRUGS (2)
  1. AMNESTEEM [Suspect]
     Indication: ACNE
     Route: 048
     Dates: start: 20110401, end: 20110418
  2. AMNESTEEM [Suspect]
     Route: 048
     Dates: start: 20110425

REACTIONS (4)
  - LIP DRY [None]
  - ORAL HERPES [None]
  - PYREXIA [None]
  - DRY THROAT [None]
